FAERS Safety Report 5431583-0 (Version None)
Quarter: 2007Q3

REPORT INFORMATION
  Report Type: 
  Country: None (occurrence: None)
  Receive Date: 20070830
  Receipt Date: 20070820
  Transmission Date: 20080115
  Serious: Yes (Hospitalization, Other)
  Sender: FDA-Public Use
  Company Number: US-JNJFOC-20051003796

PATIENT
  Sex: Male
  Weight: 117.48 kg

DRUGS (20)
  1. RISPERDAL [Suspect]
     Dates: end: 20040701
  2. RISPERDAL [Suspect]
     Dates: end: 20040701
  3. RISPERDAL [Suspect]
     Dates: end: 20040701
  4. RISPERDAL [Suspect]
     Dosage: 2 MG IN THE MORNING; 3 MG AT BEDTIME
     Dates: end: 20040701
  5. RISPERDAL [Suspect]
     Dates: end: 20040701
  6. RISPERDAL [Suspect]
     Dates: end: 20040701
  7. RISPERDAL [Suspect]
     Dates: end: 20040701
  8. RISPERDAL [Suspect]
     Dates: end: 20040701
  9. RISPERDAL [Suspect]
     Indication: SCHIZOAFFECTIVE DISORDER
     Dosage: START TITRATE 1 TO 3 MG TWICE DAILY
     Dates: end: 20040701
  10. TRILAFON [Concomitant]
  11. PAXIL [Concomitant]
  12. TRAZODONE HCL [Concomitant]
  13. BUSPAR [Concomitant]
  14. GLUCOTROL [Concomitant]
  15. GLUCOPHAGE [Concomitant]
  16. PREVACID [Concomitant]
  17. PRECOSE [Concomitant]
  18. AVANDIA [Concomitant]
  19. WELLBUTRIN SR [Concomitant]
     Dosage: 150 MG DAILY X 1 WEEK THEN TWICE DAILY
  20. ZYPREXA [Concomitant]

REACTIONS (20)
  - AMNESIA [None]
  - BACK PAIN [None]
  - BRONCHITIS [None]
  - CHEST PAIN [None]
  - CONJUNCTIVITIS [None]
  - EJACULATION FAILURE [None]
  - FATIGUE [None]
  - GASTROOESOPHAGEAL REFLUX DISEASE [None]
  - HAEMORRHOIDAL HAEMORRHAGE [None]
  - MOOD SWINGS [None]
  - PAIN IN EXTREMITY [None]
  - PNEUMONIA [None]
  - POLLAKIURIA [None]
  - PSYCHOTIC DISORDER [None]
  - RESPIRATORY FAILURE [None]
  - SCHIZOPHRENIA, PARANOID TYPE [None]
  - SUICIDAL IDEATION [None]
  - TYPE 2 DIABETES MELLITUS [None]
  - UPPER RESPIRATORY TRACT INFECTION [None]
  - WEIGHT INCREASED [None]
